FAERS Safety Report 15243243 (Version 1)
Quarter: 2018Q4

REPORT INFORMATION
  Report Type: Spontaneous
  Country: US (occurrence: US)
  Receive Date: 20180806
  Receipt Date: 20180806
  Transmission Date: 20190204
  Serious: Yes (Other)
  Sender: FDA-Public Use
  Company Number: US-HIKMA PHARMACEUTICALS USA INC.-US-H14001-18-06311

PATIENT
  Sex: Female

DRUGS (1)
  1. DOXORUBICIN [Suspect]
     Active Substance: DOXORUBICIN
     Indication: METASTATIC NEOPLASM
     Dosage: ()
     Route: 065

REACTIONS (7)
  - Diarrhoea [Unknown]
  - Failure to thrive [Unknown]
  - Nausea [Unknown]
  - Pancytopenia [Unknown]
  - Toxicity to various agents [Unknown]
  - Hypocalcaemia [Unknown]
  - Fatigue [Unknown]
